FAERS Safety Report 8899713 (Version 1)
Quarter: 2012Q4

REPORT INFORMATION
  Report Type: 
  Country: US (occurrence: US)
  Receive Date: 20121108
  Receipt Date: 20121108
  Transmission Date: 20130627
  Serious: Yes (Hospitalization)
  Sender: FDA-Public Use
  Company Number: US-AMGEN-USASP2012035921

PATIENT
  Age: 79 Year
  Sex: Female

DRUGS (15)
  1. ENBREL [Suspect]
     Indication: RHEUMATOID ARTHRITIS
     Dosage: 50 mg, qwk
     Dates: start: 201202, end: 201204
  2. ATENOLOL [Concomitant]
     Dosage: UNK
  3. FOLIC ACID [Concomitant]
     Dosage: UNK
  4. DONEPEZIL [Concomitant]
     Dosage: UNK
  5. PRAVASTATIN [Concomitant]
     Dosage: UNK
  6. ALENDRONATE [Concomitant]
     Dosage: UNK
  7. ENABLEX                            /01760401/ [Concomitant]
     Dosage: UNK
  8. PREMARIN [Concomitant]
     Dosage: UNK
  9. FISH OIL [Concomitant]
     Dosage: UNK
  10. VITAMIN C                          /00008001/ [Concomitant]
     Dosage: UNK
  11. PRESERVISION AREDS [Concomitant]
     Dosage: UNK
  12. ASPIRIN [Concomitant]
     Dosage: UNK
  13. SLO-NIACIN [Concomitant]
     Dosage: UNK
  14. MELADININE                         /00505001/ [Concomitant]
     Dosage: UNK
  15. TEMAZEPAM [Concomitant]
     Dosage: UNK

REACTIONS (1)
  - Infection [Unknown]
